FAERS Safety Report 6081869-4 (Version None)
Quarter: 2009Q1

REPORT INFORMATION
  Report Type: 
  Country: None (occurrence: None)
  Receive Date: 20090218
  Receipt Date: 20080421
  Transmission Date: 20090719
  Serious: No
  Sender: FDA-Public Use
  Company Number: US-BRISTOL-MYERS SQUIBB COMPANY-14159164

PATIENT
  Age: 72 Year
  Sex: Female
  Weight: 81 kg

DRUGS (4)
  1. GLUCOPHAGE [Suspect]
     Indication: TYPE 2 DIABETES MELLITUS
     Dosage: DOSE REDUCED TO 500MG DAILY IN DEC2007.
     Dates: start: 20071001
  2. TOPROL-XL [Concomitant]
  3. LIPITOR [Concomitant]
  4. PHENOBARBITAL [Concomitant]

REACTIONS (4)
  - BLADDER PAIN [None]
  - CONSTIPATION [None]
  - DIARRHOEA [None]
  - HEADACHE [None]
